FAERS Safety Report 8391057-4 (Version None)
Quarter: 2012Q2

REPORT INFORMATION
  Report Type: 
  Country: None (occurrence: None)
  Receive Date: 20120521
  Receipt Date: 20120511
  Transmission Date: 20120825
  Serious: Yes (Other)
  Sender: FDA-Public Use
  Company Number: 2012115215

PATIENT
  Age: 76 Year
  Sex: Male
  Weight: 39 kg

DRUGS (1)
  1. FRAGMIN [Suspect]
     Dosage: 2500 IU, 1X/DAY

REACTIONS (1)
  - RENAL IMPAIRMENT [None]
